FAERS Safety Report 21424768 (Version 1)
Quarter: 2022Q4

REPORT INFORMATION
  Report Type: Spontaneous
  Country: IN (occurrence: IN)
  Receive Date: 20221008
  Receipt Date: 20221008
  Transmission Date: 20230113
  Serious: Yes (Death, Life-Threatening, Other)
  Sender: FDA-Public Use
  Company Number: IN-drreddys-LIT/IND/22/0155548

PATIENT
  Age: 32 Year
  Sex: Male

DRUGS (3)
  1. AMPHOTERICIN B [Suspect]
     Active Substance: AMPHOTERICIN B
     Indication: Pulmonary mucormycosis
  2. DEXAMETHASONE [Suspect]
     Active Substance: DEXAMETHASONE
     Indication: Suspected COVID-19
  3. ENOXAPARIN [Suspect]
     Active Substance: ENOXAPARIN
     Indication: Suspected COVID-19

REACTIONS (3)
  - Death [Fatal]
  - Drug ineffective [Unknown]
  - Product use in unapproved indication [Unknown]
